FAERS Safety Report 22864534 (Version 3)
Quarter: 2023Q4

REPORT INFORMATION
  Report Type: Report from Study
  Country: CA (occurrence: CA)
  Receive Date: 20230825
  Receipt Date: 20231003
  Transmission Date: 20240110
  Serious: Yes (Hospitalization, Other)
  Sender: FDA-Public Use
  Company Number: CA-ABBVIE-5379781

PATIENT
  Sex: Male

DRUGS (4)
  1. SKYRIZI [Suspect]
     Active Substance: RISANKIZUMAB-RZAA
     Indication: Crohn^s disease
     Dosage: TIME INTERVAL: TOTAL: AT WEEK 12 AND EVERY 8 WEEKS AFTER
     Route: 058
     Dates: start: 2023, end: 2023
  2. SKYRIZI [Suspect]
     Active Substance: RISANKIZUMAB-RZAA
     Indication: Crohn^s disease
     Dosage: TIME INTERVAL: TOTAL: WEEK 0
     Route: 042
     Dates: start: 20230602, end: 20230602
  3. SKYRIZI [Suspect]
     Active Substance: RISANKIZUMAB-RZAA
     Indication: Crohn^s disease
     Dosage: TIME INTERVAL: TOTAL: WEEK 4
     Route: 042
     Dates: start: 2023, end: 2023
  4. SKYRIZI [Suspect]
     Active Substance: RISANKIZUMAB-RZAA
     Indication: Crohn^s disease
     Dosage: TIME INTERVAL: TOTAL: WEEK 8
     Route: 042
     Dates: start: 2023, end: 2023

REACTIONS (26)
  - Pulmonary thrombosis [Recovered/Resolved]
  - Unevaluable event [Unknown]
  - Headache [Recovered/Resolved]
  - Haemoglobin decreased [Recovering/Resolving]
  - Swelling face [Recovered/Resolved]
  - Renal function test abnormal [Unknown]
  - Head discomfort [Unknown]
  - Peripheral swelling [Unknown]
  - Head discomfort [Recovered/Resolved]
  - Hyperhidrosis [Recovered/Resolved]
  - Gait disturbance [Unknown]
  - Malaise [Recovered/Resolved]
  - Constipation [Recovered/Resolved]
  - Abdominal discomfort [Unknown]
  - Abdominal discomfort [Recovered/Resolved]
  - Neck pain [Recovered/Resolved]
  - Pruritus [Unknown]
  - Skin laceration [Unknown]
  - Unevaluable event [Unknown]
  - Abdominal distension [Unknown]
  - Tremor [Unknown]
  - Night sweats [Recovered/Resolved]
  - Body temperature increased [Recovered/Resolved]
  - Impaired quality of life [Unknown]
  - Feeling abnormal [Unknown]
  - Fatigue [Unknown]

NARRATIVE: CASE EVENT DATE: 20230101
